FAERS Safety Report 15554216 (Version 1)
Quarter: 2018Q4

REPORT INFORMATION
  Report Type: Spontaneous
  Country: US (occurrence: US)
  Receive Date: 20181026
  Receipt Date: 20181026
  Transmission Date: 20190205
  Serious: No
  Sender: FDA-Public Use
  Company Number: US-PFIZER INC-2018428525

PATIENT
  Age: 63 Year
  Sex: Male
  Weight: 148.78 kg

DRUGS (1)
  1. LYRICA [Suspect]
     Active Substance: PREGABALIN
     Indication: DIABETIC NEUROPATHY
     Dosage: 75 MG, 2X/DAY (1 IN THE MORNING AND 1 AT NIGHT BY MOUTH   )
     Route: 048

REACTIONS (1)
  - Visual impairment [Unknown]
